FAERS Safety Report 18485371 (Version 1)
Quarter: 2020Q4

REPORT INFORMATION
  Report Type: Spontaneous
  Country: US (occurrence: US)
  Receive Date: 20201110
  Receipt Date: 20201110
  Transmission Date: 20210114
  Serious: Yes (Other)
  Sender: FDA-Public Use
  Company Number: US-GLENMARK PHARMACEUTICALS-2020GMK050384

PATIENT
  Sex: Female

DRUGS (3)
  1. LIDOCAINE. [Suspect]
     Active Substance: LIDOCAINE
     Dosage: UNK (RECEIVED LIDOCAINE DURING PREGNANCY FOR INTRADERMAL TESTING)
     Route: 062
  2. BUPIVACAINE [BUPIVACAINE HYDROCHLORIDE] [Concomitant]
     Active Substance: BUPIVACAINE HYDROCHLORIDE
     Indication: PRODUCT USED FOR UNKNOWN INDICATION
     Dosage: UNK
     Route: 065
  3. LIDOCAINE. [Suspect]
     Active Substance: LIDOCAINE
     Indication: LOCAL ANAESTHESIA
     Dosage: UNK (RECEIVED LIDOCAINE DURING DENTAL PROCEDURE)
     Route: 065

REACTIONS (4)
  - Type I hypersensitivity [Unknown]
  - Swelling [Unknown]
  - Exposure during pregnancy [Unknown]
  - Urticaria [Unknown]
